FAERS Safety Report 5147312-4 (Version None)
Quarter: 2006Q4

REPORT INFORMATION
  Report Type: 
  Country: None (occurrence: None)
  Receive Date: 20061103
  Receipt Date: 20061024
  Transmission Date: 20070319
  Serious: Yes (Other)
  Sender: FDA-Public Use
  Company Number: FABR-11715

PATIENT
  Age: 39 Year
  Sex: Female
  Weight: 97.73 kg

DRUGS (1)
  1. FABRAZYME [Suspect]
     Indication: FABRY'S DISEASE
     Dosage: 105 MG Q2WKS, IV
     Route: 042
     Dates: start: 20060220

REACTIONS (1)
  - MALIGNANT MELANOMA [None]
